FAERS Safety Report 8561489-X (Version None)
Quarter: 2012Q3

REPORT INFORMATION
  Report Type: 
  Country: None (occurrence: None)
  Receive Date: 20120802
  Receipt Date: 20120730
  Transmission Date: 20120928
  Serious: Yes (Other)
  Sender: FDA-Public Use
  Company Number: US-PFIZER INC-2012185178

PATIENT
  Sex: Female

DRUGS (4)
  1. LYRICA [Suspect]
     Dosage: UNK
  2. ZOLOFT [Suspect]
     Dosage: UNK
  3. CELEBREX [Suspect]
     Dosage: UNK
  4. PREMARIN [Suspect]
     Dosage: UNK

REACTIONS (2)
  - HEARING IMPAIRED [None]
  - HIP ARTHROPLASTY [None]
